FAERS Safety Report 7095787-6 (Version None)
Quarter: 2010Q4

REPORT INFORMATION
  Report Type: 
  Country: None (occurrence: None)
  Receive Date: 20101111
  Receipt Date: 20101029
  Transmission Date: 20110411
  Serious: Yes (Hospitalization, Other)
  Sender: FDA-Public Use
  Company Number: PHHY2010US73204

PATIENT
  Sex: Male

DRUGS (2)
  1. EXJADE [Suspect]
     Indication: NEOPLASM
     Dosage: 1000 MG, QD
     Route: 048
  2. EXJADE [Suspect]
     Indication: LABORATORY TEST ABNORMAL
     Dosage: 2000 MG, QD
     Route: 048

REACTIONS (4)
  - ERYTHEMA [None]
  - FLUSHING [None]
  - HOT FLUSH [None]
  - INFECTION [None]
